FAERS Safety Report 8841297 (Version 3)
Quarter: 2014Q1

REPORT INFORMATION
  Report Type: Spontaneous
  Country: US (occurrence: US)
  Receive Date: 20121015
  Receipt Date: 20140320
  Transmission Date: 20141002
  Serious: Yes (Hospitalization, Disabling, Other)
  Sender: FDA-Public Use
  Company Number: US-009507513-1210USA004117

PATIENT
  Sex: Female

DRUGS (3)
  1. FOSAMAX [Suspect]
     Indication: OSTEOPOROSIS
     Dosage: 70 MG, QW
     Route: 048
     Dates: start: 20020130
  2. FOSAMAX [Suspect]
     Route: 048
  3. ALENDRONATE SODIUM [Suspect]
     Indication: OSTEOPOROSIS
     Dosage: 70 MG, QW
     Route: 048
     Dates: start: 2008

REACTIONS (27)
  - Femur fracture [Not Recovered/Not Resolved]
  - Intramedullary rod insertion [Unknown]
  - Spinal column stenosis [Not Recovered/Not Resolved]
  - Spinal fusion surgery [Unknown]
  - Spinal fusion surgery [Unknown]
  - Spinal fusion surgery [Unknown]
  - Retinal vein occlusion [Unknown]
  - Spinal fusion surgery [Unknown]
  - Ankle fracture [Unknown]
  - Angiopathy [Unknown]
  - Connective tissue disorder [Unknown]
  - Autoimmune disorder [Unknown]
  - Nasopharyngitis [Unknown]
  - Hypertension [Unknown]
  - Spinal osteoarthritis [Unknown]
  - Dyspnoea exertional [Not Recovered/Not Resolved]
  - Intervertebral disc degeneration [Unknown]
  - Scoliosis [Unknown]
  - Spondylolisthesis [Unknown]
  - Lumbar radiculopathy [Unknown]
  - Gastrointestinal motility disorder [Unknown]
  - Hyponatraemia [Recovered/Resolved]
  - Constipation [Recovered/Resolved]
  - Abdominal distension [Recovered/Resolved]
  - Gastrooesophageal reflux disease [Unknown]
  - Myalgia [Unknown]
  - Flatulence [Unknown]
